FAERS Safety Report 4586044-8 (Version None)
Quarter: 2005Q1

REPORT INFORMATION
  Report Type: 
  Country: None (occurrence: None)
  Receive Date: 20050125
  Receipt Date: 20041130
  Transmission Date: 20050727
  Serious: No
  Sender: FDA-Public Use
  Company Number: USA040978781

PATIENT
  Age: 78 Year
  Sex: Female
  Weight: 64 kg

DRUGS (3)
  1. FORTEO [Suspect]
     Indication: OSTEOPOROSIS
     Dosage: 20 UG/L DAY
     Dates: start: 20040819
  2. CALCIUM GLUCONATE [Concomitant]
  3. ACETAMINOPHEN W/ PROPOXYPHENE HCL [Concomitant]

REACTIONS (6)
  - ASTHENIA [None]
  - CONSTIPATION [None]
  - FATIGUE [None]
  - INJECTION SITE ERYTHEMA [None]
  - INJECTION SITE HAEMORRHAGE [None]
  - PAIN [None]
